FAERS Safety Report 12789801 (Version 1)
Quarter: 2016Q3

REPORT INFORMATION
  Report Type: Spontaneous
  Country: ES (occurrence: ES)
  Receive Date: 20160928
  Receipt Date: 20160928
  Transmission Date: 20161109
  Serious: Yes (Other)
  Sender: FDA-Public Use
  Company Number: ES-APOTEX-2016AP011963

PATIENT
  Sex: Female

DRUGS (4)
  1. DIGOXIN. [Suspect]
     Active Substance: DIGOXIN
     Indication: TACHYCARDIA FOETAL
     Dosage: UNK
     Route: 048
  2. FLECAINIDA APOTEX COMPRIMIDOS EFG [Suspect]
     Active Substance: FLECAINIDE
     Indication: TACHYCARDIA FOETAL
     Dosage: UNK
     Route: 048
  3. FLECAINIDA APOTEX COMPRIMIDOS EFG [Suspect]
     Active Substance: FLECAINIDE
     Indication: HYDROPS FOETALIS
  4. DIGOXIN. [Suspect]
     Active Substance: DIGOXIN
     Indication: HYDROPS FOETALIS
     Dosage: UNK
     Route: 042

REACTIONS (3)
  - Maternal exposure during pregnancy [Recovered/Resolved]
  - Palpitations [Unknown]
  - Electrocardiogram ST segment depression [Unknown]
